FAERS Safety Report 5520675-3 (Version None)
Quarter: 2007Q4

REPORT INFORMATION
  Report Type: 
  Country: None (occurrence: None)
  Receive Date: 20071119
  Receipt Date: 20071112
  Transmission Date: 20080405
  Serious: Yes (Death, Hospitalization)
  Sender: FDA-Public Use
  Company Number: PHHY2007BE00455

PATIENT
  Age: 75 Year
  Sex: Female

DRUGS (5)
  1. LEPONEX [Suspect]
     Dosage: 150 MG/DAY
     Route: 048
     Dates: start: 20050915, end: 20050926
  2. LEPONEX [Suspect]
     Dosage: 100 MG/DAY
     Route: 048
     Dates: start: 20050927, end: 20050929
  3. LEPONEX [Suspect]
     Dosage: 50 MG/DAY
     Route: 048
     Dates: start: 20050930
  4. SEROQUEL [Concomitant]
     Dosage: 50 MG/DAY
     Route: 048
     Dates: start: 20050927, end: 20050930
  5. TENORMIN [Concomitant]
     Dosage: 25 MG/DAY
     Route: 048
     Dates: start: 20050914, end: 20051001

REACTIONS (11)
  - ACUTE FEBRILE NEUTROPHILIC DERMATOSIS [None]
  - AGRANULOCYTOSIS [None]
  - BODY TEMPERATURE INCREASED [None]
  - CIRCULATORY COLLAPSE [None]
  - EOSINOPHILIA [None]
  - LEUKOCYTOSIS [None]
  - LEUKOPENIA [None]
  - NEUTROPENIA [None]
  - RASH ERYTHEMATOUS [None]
  - SEPTIC SHOCK [None]
  - URINARY TRACT INFECTION [None]
